FAERS Safety Report 10285662 (Version 1)
Quarter: 2014Q3

REPORT INFORMATION
  Report Type: Spontaneous
  Country: US (occurrence: US)
  Receive Date: 20140709
  Receipt Date: 20140709
  Transmission Date: 20150326
  Serious: No
  Sender: FDA-Public Use
  Company Number: US-009507513-1407USA003571

PATIENT
  Age: 27 Year
  Sex: Female
  Weight: 113.83 kg

DRUGS (1)
  1. IMPLANON [Suspect]
     Active Substance: ETONOGESTREL
     Indication: CONTRACEPTION
     Dosage: 68MG, 1 ROD
     Route: 059
     Dates: start: 2011

REACTIONS (1)
  - Medical device complication [Not Recovered/Not Resolved]
